FAERS Safety Report 14082842 (Version 2)
Quarter: 2017Q4

REPORT INFORMATION
  Report Type: Spontaneous
  Country: SE (occurrence: SE)
  Receive Date: 20171013
  Receipt Date: 20171109
  Transmission Date: 20180321
  Serious: Yes (Other)
  Sender: FDA-Public Use
  Company Number: SE-TEVA-813532ISR

PATIENT
  Age: 24 Year
  Sex: Male

DRUGS (5)
  1. KEPPRA [Concomitant]
     Active Substance: LEVETIRACETAM
     Indication: EPILEPSY
     Dosage: 1750 MILLIGRAM DAILY;
     Route: 048
     Dates: start: 2012
  2. LAMOTRIGINE. [Suspect]
     Active Substance: LAMOTRIGINE
     Dosage: 50 MILLIGRAM DAILY;
     Route: 048
     Dates: start: 201607, end: 201607
  3. IMUREL [Concomitant]
     Active Substance: AZATHIOPRINE SODIUM
     Route: 065
  4. LAMOTRIGINE. [Suspect]
     Active Substance: LAMOTRIGINE
     Dosage: 100 MILLIGRAM DAILY;
     Route: 048
     Dates: start: 201607
  5. DIMOR [Concomitant]
     Active Substance: LOPERAMIDE
     Route: 065

REACTIONS (1)
  - Crohn^s disease [Recovered/Resolved]

NARRATIVE: CASE EVENT DATE: 201611
